FAERS Safety Report 26095500 (Version 1)
Quarter: 2025Q4

REPORT INFORMATION
  Report Type: Report from Study
  Country: PE (occurrence: PE)
  Receive Date: 20251127
  Receipt Date: 20251127
  Transmission Date: 20260118
  Serious: Yes (Other)
  Sender: ROCHE
  Company Number: PE-ROCHE-10000112303

PATIENT
  Age: 77 Year
  Sex: Female

DRUGS (2)
  1. ACTEMRA [Suspect]
     Active Substance: TOCILIZUMAB
     Indication: Rheumatoid arthritis
     Route: 058
     Dates: start: 20090720
  2. Calcium Citrate + Vitamin D [Concomitant]
     Dosage: TAKE ONE TABLET AT LUNCH AND DINNER?CALCIUM CITRATE + VITAMIN D 8000IU
     Route: 048

REACTIONS (12)
  - Sjogren^s syndrome [Unknown]
  - Osteoporosis postmenopausal [Unknown]
  - Type IIa hyperlipidaemia [Unknown]
  - Carpal tunnel syndrome [Unknown]
  - Limb deformity [Unknown]
  - Dysphonia [Unknown]
  - Dry throat [Unknown]
  - Visual impairment [Unknown]
  - Cataract [Unknown]
  - Initial insomnia [Unknown]
  - Cough [Unknown]
  - Tinnitus [Unknown]
